FAERS Safety Report 5272216-6 (Version None)
Quarter: 2007Q1

REPORT INFORMATION
  Report Type: 
  Country: None (occurrence: None)
  Receive Date: 20070322
  Receipt Date: 20061219
  Transmission Date: 20070707
  Serious: No
  Sender: FDA-Public Use
  Company Number: US-GLAXOSMITHKLINE-A0632122A

PATIENT
  Sex: Female

DRUGS (2)
  1. AVANDARYL [Suspect]
     Dates: start: 20061217
  2. UNKNOWN MEDICATION [Concomitant]

REACTIONS (2)
  - SENSATION OF HEAVINESS [None]
  - SOMNOLENCE [None]
